FAERS Safety Report 9652437 (Version 1)
Quarter: 2013Q4

REPORT INFORMATION
  Report Type: Spontaneous
  Country: US (occurrence: US)
  Receive Date: 20131029
  Receipt Date: 20131029
  Transmission Date: 20140711
  Serious: Yes (Other)
  Sender: FDA-Public Use
  Company Number: US-PFIZER INC-2013306185

PATIENT
  Age: 79 Year
  Sex: Female
  Weight: 70.3 kg

DRUGS (2)
  1. CELEBREX [Suspect]
     Indication: BACK PAIN
     Dosage: 200 MG, 1X/DAY
     Route: 048
     Dates: end: 201310
  2. CELEBREX [Suspect]
     Indication: ARTHRALGIA

REACTIONS (3)
  - Back disorder [Unknown]
  - Back pain [Unknown]
  - Arthralgia [Unknown]
